FAERS Safety Report 4996148-3 (Version None)
Quarter: 2006Q2

REPORT INFORMATION
  Report Type: 
  Country: None (occurrence: None)
  Receive Date: 20060504
  Receipt Date: 20060419
  Transmission Date: 20061013
  Serious: Yes (Life-Threatening)
  Sender: FDA-Public Use
  Company Number: OMPQ-NO-0604L-0246

PATIENT
  Age: 73 Year
  Sex: Male

DRUGS (1)
  1. OMNIPAQUE 140 [Suspect]
     Indication: CORONARY ARTERY STENOSIS
     Dosage: SEE IMAGE
     Route: 042
     Dates: start: 20030411, end: 20030411

REACTIONS (25)
  - ACUTE RESPIRATORY DISTRESS SYNDROME [None]
  - ANAPHYLACTIC SHOCK [None]
  - ARTERIOSPASM CORONARY [None]
  - ATRIOVENTRICULAR BLOCK COMPLETE [None]
  - BLOOD CREATINE PHOSPHOKINASE INCREASED [None]
  - BLOOD PRESSURE DECREASED [None]
  - CARDIAC ARREST [None]
  - CAROTID ARTERY STENOSIS [None]
  - CHEST DISCOMFORT [None]
  - COLD SWEAT [None]
  - CORONARY ARTERY STENOSIS [None]
  - DIZZINESS [None]
  - DYSPNOEA [None]
  - HAEMATOMA [None]
  - HYPOVOLAEMIC SHOCK [None]
  - LUNG INJURY [None]
  - NODAL RHYTHM [None]
  - PULMONARY ARTERIAL WEDGE PRESSURE DECREASED [None]
  - RALES [None]
  - RHYTHM IDIOVENTRICULAR [None]
  - VENTRICULAR FIBRILLATION [None]
  - VENTRICULAR TACHYCARDIA [None]
  - VESSEL PUNCTURE SITE HAEMATOMA [None]
  - VISION BLURRED [None]
  - VISUAL DISTURBANCE [None]
